FAERS Safety Report 4646413-4 (Version None)
Quarter: 2005Q2

REPORT INFORMATION
  Report Type: 
  Country: None (occurrence: None)
  Receive Date: 20050427
  Receipt Date: 20041112
  Transmission Date: 20051028
  Serious: No
  Sender: FDA-Public Use
  Company Number: US-GLAXOSMITHKLINE-A0533768A

PATIENT
  Age: 69 Year
  Sex: Female

DRUGS (4)
  1. SEREVENT [Suspect]
     Dosage: 1PUFF TWICE PER DAY
     Route: 055
     Dates: start: 20041001
  2. PREDNISONE [Concomitant]
  3. IMURAN [Concomitant]
  4. SYNTHROID [Concomitant]

REACTIONS (2)
  - OESOPHAGEAL PAIN [None]
  - ORAL DISCOMFORT [None]
